FAERS Safety Report 14189317 (Version 1)
Quarter: 2017Q4

REPORT INFORMATION
  Report Type: Report from Study
  Country: DE (occurrence: DE)
  Receive Date: 20171115
  Receipt Date: 20171115
  Transmission Date: 20180321
  Serious: Yes (Hospitalization)
  Sender: FDA-Public Use
  Company Number: DE-ROCHE-2024897

PATIENT
  Age: 52 Year
  Sex: Male
  Weight: 81 kg

DRUGS (6)
  1. ATACAND PLUS [Concomitant]
     Active Substance: CANDESARTAN CILEXETIL\HYDROCHLOROTHIAZIDE
     Indication: ESSENTIAL HYPERTENSION
     Route: 048
  2. VALORON (GERMANY) [Concomitant]
     Active Substance: TILIDINE HYDROCHLORIDE
     Indication: PAIN
     Dosage: DOSE 100/8 MG
     Route: 048
  3. ASPIRIN. [Concomitant]
     Active Substance: ASPIRIN
     Route: 048
  4. BEVACIZUMAB. [Suspect]
     Active Substance: BEVACIZUMAB
     Indication: METASTATIC RENAL CELL CARCINOMA
     Route: 042
     Dates: start: 20110518, end: 20111123
  5. INTERFERON ALFA-2A [Suspect]
     Active Substance: INTERFERON ALFA-2A
     Indication: METASTATIC RENAL CELL CARCINOMA
     Route: 058
     Dates: start: 20110518, end: 20111130
  6. NOVAMINSULFON [Concomitant]
     Active Substance: METAMIZOLE
     Indication: PAIN
     Dosage: DOSE: 25-30 GTT
     Route: 048

REACTIONS (8)
  - Ischaemic stroke [Unknown]
  - Diarrhoea [Unknown]
  - Dysarthria [Recovering/Resolving]
  - Hemiparesis [Recovering/Resolving]
  - Infarction [Recovering/Resolving]
  - Transient ischaemic attack [Recovering/Resolving]
  - Hemiparesis [Recovering/Resolving]
  - Dyslipidaemia [Unknown]

NARRATIVE: CASE EVENT DATE: 20110713
